FAERS Safety Report 6602727-X (Version None)
Quarter: 2010Q1

REPORT INFORMATION
  Report Type: 
  Country: None (occurrence: None)
  Receive Date: 20100218
  Receipt Date: 20100208
  Transmission Date: 20100710
  Serious: Yes (Hospitalization)
  Sender: FDA-Public Use
  Company Number: 006415

PATIENT
  Sex: Male

DRUGS (4)
  1. ROTIGOTINE (ROTIGOTINE) [Suspect]
     Indication: PARKINSON'S DISEASE
     Dosage: (2 MG QD TRANSDERMAL) ; (4 MG QD TRANSDERMAL) ; (6 MG QD TRANSDERMAL)  ; (8 MG QD TRANSDERMAL)
     Route: 062
     Dates: start: 20080408, end: 20080414
  2. ROTIGOTINE (ROTIGOTINE) [Suspect]
     Indication: PARKINSON'S DISEASE
     Dosage: (2 MG QD TRANSDERMAL) ; (4 MG QD TRANSDERMAL) ; (6 MG QD TRANSDERMAL)  ; (8 MG QD TRANSDERMAL)
     Route: 062
     Dates: start: 20080415, end: 20080421
  3. ROTIGOTINE (ROTIGOTINE) [Suspect]
     Indication: PARKINSON'S DISEASE
     Dosage: (2 MG QD TRANSDERMAL) ; (4 MG QD TRANSDERMAL) ; (6 MG QD TRANSDERMAL)  ; (8 MG QD TRANSDERMAL)
     Route: 062
     Dates: start: 20080422, end: 20090810
  4. ROTIGOTINE (ROTIGOTINE) [Suspect]
     Indication: PARKINSON'S DISEASE
     Dosage: (2 MG QD TRANSDERMAL) ; (4 MG QD TRANSDERMAL) ; (6 MG QD TRANSDERMAL)  ; (8 MG QD TRANSDERMAL)
     Route: 062
     Dates: start: 20090811

REACTIONS (1)
  - KNEE OPERATION [None]
